FAERS Safety Report 5030358-4 (Version None)
Quarter: 2006Q2

REPORT INFORMATION
  Report Type: 
  Country: None (occurrence: None)
  Receive Date: 20060614
  Receipt Date: 20060601
  Transmission Date: 20061013
  Serious: Yes (Death, Hospitalization, Disabling)
  Sender: FDA-Public Use
  Company Number: 167-20785-06020441

PATIENT
  Age: 62 Year
  Sex: Female

DRUGS (6)
  1. THALIDOMIDE - PHARMION (THALIDOMIDE) (50 MILLIGRAM, CAPSULES) [Suspect]
     Indication: NON-SMALL CELL LUNG CANCER
     Dosage: 200 MG, DAILY, ORAL
     Route: 048
     Dates: start: 20050616, end: 20060215
  2. GEMCITABINE [Concomitant]
  3. CARBOPLATIN [Concomitant]
  4. ZOLEDRONIC ACID (ZOLEDRONIC ACID) [Concomitant]
  5. DURAGESIC-100 [Concomitant]
  6. ORAMORPH SR [Concomitant]

REACTIONS (12)
  - AMNESIA [None]
  - BRAIN MASS [None]
  - CEREBRAL DISORDER [None]
  - CONFUSIONAL STATE [None]
  - COORDINATION ABNORMAL [None]
  - DISORIENTATION [None]
  - GAIT DISTURBANCE [None]
  - HYPOAESTHESIA [None]
  - LUNG NEOPLASM MALIGNANT [None]
  - MALIGNANT NEOPLASM PROGRESSION [None]
  - SPEECH DISORDER [None]
  - TREMOR [None]
